FAERS Safety Report 5246860-6 (Version None)
Quarter: 2007Q1

REPORT INFORMATION
  Report Type: 
  Country: None (occurrence: None)
  Receive Date: 20070226
  Receipt Date: 20070214
  Transmission Date: 20070707
  Serious: Yes (Other)
  Sender: FDA-Public Use
  Company Number: GB-PFIZER INC-2007013279

PATIENT
  Sex: Female

DRUGS (2)
  1. EPANUTIN INFATABS [Suspect]
     Indication: EPILEPSY
  2. EPILIM [Concomitant]

REACTIONS (9)
  - ABNORMAL BEHAVIOUR [None]
  - ANAEMIA [None]
  - ANGINA PECTORIS [None]
  - BALANCE DISORDER [None]
  - CONVULSION [None]
  - LUNG DISORDER [None]
  - LYMPHADENOPATHY [None]
  - MYOCARDIAL INFARCTION [None]
  - WEIGHT INCREASED [None]
